FAERS Safety Report 15549955 (Version 8)
Quarter: 2022Q2

REPORT INFORMATION
  Report Type: Other
  Country: US (occurrence: None)
  Receive Date: 20181025
  Receipt Date: 20220608
  Transmission Date: 20220720
  Serious: Yes (Death, Hospitalization, Other)
  Sender: FDA-Public Use
  Company Number: US-ROCHE-2197925

PATIENT
  Age: 83 Year
  Sex: Male

DRUGS (14)
  1. ESBRIET [Suspect]
     Active Substance: PIRFENIDONE
     Indication: Idiopathic pulmonary fibrosis
     Route: 048
     Dates: start: 20180924, end: 20181007
  2. ESBRIET [Suspect]
     Active Substance: PIRFENIDONE
     Dosage: TWO PILLS THREE TIMES A DAY
     Route: 048
     Dates: start: 20181008, end: 20181009
  3. ESBRIET [Suspect]
     Active Substance: PIRFENIDONE
     Dosage: RESTARTED THERAPY (THERAPY DETAILS UNKNOWN)
     Route: 048
  4. ESBRIET [Suspect]
     Active Substance: PIRFENIDONE
     Dosage: 2 PILLS THRICE A DAY
     Route: 048
     Dates: start: 201809
  5. ESBRIET [Suspect]
     Active Substance: PIRFENIDONE
     Dosage: THREE 267MG THREE TIMES A DAY
     Route: 048
     Dates: start: 2018
  6. ESBRIET [Suspect]
     Active Substance: PIRFENIDONE
     Route: 048
  7. ATORVASTATIN [Concomitant]
     Active Substance: ATORVASTATIN
  8. CARVEDILOL [Concomitant]
     Active Substance: CARVEDILOL
     Dosage: WITH FOOD
     Route: 048
  9. ECOTRIN [Concomitant]
     Active Substance: ASPIRIN
  10. MINERALS\VITAMINS [Concomitant]
     Active Substance: MINERALS\VITAMINS
     Route: 048
  11. OXYGEN [Concomitant]
     Active Substance: OXYGEN
     Dosage: 2 L
  12. PRILOSEC [Concomitant]
     Active Substance: OMEPRAZOLE MAGNESIUM
     Dosage: PRILOSEC OTC DELAYED RELEASE
     Route: 048
  13. PREDNISONE [Concomitant]
     Active Substance: PREDNISONE
     Dosage: AS DIRECTED ORALLY 4 TABLETS FOR 3 DAYS, 3 TABLETS FOR 3 DAYS, 2 TABLETS FOR 3 DAYS THEN 1?TABLET FO
     Route: 048
  14. NORVASC [Concomitant]
     Active Substance: AMLODIPINE BESYLATE
     Route: 048

REACTIONS (25)
  - Blood pressure increased [Not Recovered/Not Resolved]
  - Pneumonitis [Not Recovered/Not Resolved]
  - Pulmonary fibrosis [Not Recovered/Not Resolved]
  - Nausea [Unknown]
  - Arthralgia [Unknown]
  - Malaise [Unknown]
  - Abdominal pain upper [Unknown]
  - Nausea [Unknown]
  - Hypertension [Recovered/Resolved]
  - Arthralgia [Recovered/Resolved]
  - Oxygen saturation decreased [Not Recovered/Not Resolved]
  - Anxiety [Recovered/Resolved]
  - Ageusia [Not Recovered/Not Resolved]
  - Thinking abnormal [Unknown]
  - Decreased appetite [Not Recovered/Not Resolved]
  - Senile dementia [Unknown]
  - Diarrhoea [Recovered/Resolved with Sequelae]
  - Paraesthesia [Recovered/Resolved with Sequelae]
  - Idiopathic pulmonary fibrosis [Recovered/Resolved]
  - Pulmonary hypertension [Unknown]
  - Death [Fatal]
  - Lymph node calcification [Unknown]
  - Rales [Unknown]
  - Nasopharyngitis [Unknown]
  - Sinus congestion [Unknown]

NARRATIVE: CASE EVENT DATE: 20180901
